FAERS Safety Report 20707139 (Version 1)
Quarter: 2022Q2

REPORT INFORMATION
  Report Type: Spontaneous
  Country: US (occurrence: None)
  Receive Date: 20220413
  Receipt Date: 20220413
  Transmission Date: 20220721
  Serious: Yes (Hospitalization)
  Sender: FDA-Public Use
  Company Number: None

PATIENT
  Age: 70 Year
  Sex: Female

DRUGS (2)
  1. ZOMETA [Suspect]
     Active Substance: ZOLEDRONIC ACID
  2. IBRANCE [Concomitant]
     Active Substance: PALBOCICLIB

REACTIONS (1)
  - Hospitalisation [None]

NARRATIVE: CASE EVENT DATE: 20220114
